FAERS Safety Report 6005429-6 (Version None)
Quarter: 2008Q4

REPORT INFORMATION
  Report Type: 
  Country: None (occurrence: None)
  Receive Date: 20081217
  Receipt Date: 20081215
  Transmission Date: 20090506
  Serious: Yes (Other)
  Sender: FDA-Public Use
  Company Number: ZA-JNJFOC-20081203610

PATIENT
  Age: 11 Year
  Sex: Male

DRUGS (4)
  1. CONCERTA [Suspect]
     Route: 065
  2. CONCERTA [Suspect]
     Route: 065
  3. CONCERTA [Suspect]
     Route: 065
  4. CONCERTA [Suspect]
     Indication: DRUG USE FOR UNKNOWN INDICATION
     Route: 065

REACTIONS (7)
  - ABNORMAL BEHAVIOUR [None]
  - ANOREXIA [None]
  - DEPRESSED LEVEL OF CONSCIOUSNESS [None]
  - FEELING ABNORMAL [None]
  - GROWTH RETARDATION [None]
  - PERSONALITY CHANGE [None]
  - WEIGHT DECREASED [None]
